FAERS Safety Report 8309602-3 (Version None)
Quarter: 2012Q2

REPORT INFORMATION
  Report Type: 
  Country: None (occurrence: None)
  Receive Date: 20120423
  Receipt Date: 20120419
  Transmission Date: 20120825
  Serious: Yes (Hospitalization, Other)
  Sender: FDA-Public Use
  Company Number: ADR-2011-11270

PATIENT
  Sex: Male

DRUGS (2)
  1. LIORESAL [Suspect]
     Indication: MUSCLE SPASTICITY
     Dosage: 100 MCG, DAILY, INTRATH
     Route: 037
  2. LIORESAL [Suspect]
     Indication: BRAIN INJURY
     Dosage: 100 MCG, DAILY, INTRATH
     Route: 037

REACTIONS (4)
  - INFECTION [None]
  - STAPHYLOCOCCAL INFECTION [None]
  - IMPLANT SITE REACTION [None]
  - IMPLANT SITE DISCHARGE [None]
